FAERS Safety Report 17500474 (Version 1)
Quarter: 2020Q1

REPORT INFORMATION
  Report Type: Report from Study
  Country: BG (occurrence: BG)
  Receive Date: 20200305
  Receipt Date: 20200305
  Transmission Date: 20200409
  Serious: Yes (Hospitalization)
  Sender: FDA-Public Use
  Company Number: NVSC2020BG060675

PATIENT
  Sex: Male
  Weight: 85 kg

DRUGS (5)
  1. LAGOSA [Concomitant]
     Active Substance: DIETARY SUPPLEMENT\HERBALS\MILK THISTLE
     Indication: LIVER DISORDER
     Dosage: 140 MG (3?140)
     Route: 065
     Dates: start: 20191210, end: 20191216
  2. TASIGNA [Suspect]
     Active Substance: NILOTINIB
     Indication: CHRONIC MYELOID LEUKAEMIA
     Dosage: 600 MG, QD (DAILY) (PERORAL)
     Route: 048
     Dates: start: 20190621, end: 20190628
  3. NOLPAZA (PANTOPRAZOLE) [Concomitant]
     Indication: GASTRIC ULCER
     Dosage: 20 MG (2?1)
     Route: 065
     Dates: start: 20190703, end: 20190706
  4. TASIGNA [Suspect]
     Active Substance: NILOTINIB
     Dosage: 600 MG, QD (DAILY) (PERORAL)
     Route: 048
     Dates: start: 20190703, end: 20191210
  5. TRANSMETIL [Concomitant]
     Active Substance: ADEMETIONINE
     Indication: LIVER DISORDER
     Dosage: 500 MG (2?500)
     Route: 065
     Dates: start: 20191210, end: 20191216

REACTIONS (3)
  - Transaminases increased [Recovered/Resolved]
  - Abdominal discomfort [Recovered/Resolved]
  - Abdominal pain upper [Recovered/Resolved]

NARRATIVE: CASE EVENT DATE: 20190624
